FAERS Safety Report 6996594-2 (Version None)
Quarter: 2010Q3

REPORT INFORMATION
  Report Type: 
  Country: None (occurrence: None)
  Receive Date: 20100918
  Receipt Date: 20091112
  Transmission Date: 20110219
  Serious: No
  Sender: FDA-Public Use
  Company Number: US-WYE-H09097509

PATIENT
  Sex: Female
  Weight: 135.75 kg

DRUGS (21)
  1. PRISTIQ [Suspect]
     Indication: DEPRESSION
     Route: 048
     Dates: start: 20090419
  2. PRISTIQ [Suspect]
     Indication: BIPOLAR I DISORDER
  3. ABILIFY [Concomitant]
  4. DIOVAN [Concomitant]
  5. ATENOLOL [Concomitant]
  6. POTASSIUM [Concomitant]
  7. ZANTAC [Concomitant]
  8. PRAVASTATIN [Concomitant]
  9. ACETYLSALICYLIC ACID [Concomitant]
  10. DIOVAN HCT [Concomitant]
  11. TORASEMIDE [Concomitant]
  12. METFORMIN [Concomitant]
  13. MAGNESIUM [Concomitant]
  14. ZINC [Concomitant]
  15. VITAMIN D [Concomitant]
  16. CLONAZEPAM [Concomitant]
  17. OXYCONTIN [Concomitant]
  18. ABILIFY [Concomitant]
  19. DESYREL [Concomitant]
  20. ATENOLOL [Concomitant]
  21. LASIX [Concomitant]

REACTIONS (1)
  - DIARRHOEA [None]
